FAERS Safety Report 8434388-1 (Version None)
Quarter: 2012Q2

REPORT INFORMATION
  Report Type: 
  Country: None (occurrence: None)
  Receive Date: 20120613
  Receipt Date: 20050407
  Transmission Date: 20120825
  Serious: Yes (Hospitalization, Other)
  Sender: FDA-Public Use
  Company Number: PHHY2005SG007159

PATIENT
  Sex: Male

DRUGS (4)
  1. IMATINIB MESYLATE [Suspect]
     Dosage: 600 MG, UNK
  2. IMATINIB MESYLATE [Suspect]
     Indication: CHRONIC MYELOID LEUKAEMIA
     Dosage: 400 MG, DAILY DOSE
     Dates: start: 20000101
  3. IMATINIB MESYLATE [Suspect]
     Dosage: 500 MG, UNK
  4. IMATINIB MESYLATE [Suspect]
     Dosage: 600 MG, DAILY DOSE

REACTIONS (6)
  - DRY THROAT [None]
  - RENAL FAILURE [None]
  - HAEMATOCHEZIA [None]
  - NO THERAPEUTIC RESPONSE [None]
  - COLON CANCER [None]
  - MYALGIA [None]
